FAERS Safety Report 4417210-X (Version None)
Quarter: 2004Q2

REPORT INFORMATION
  Report Type: 
  Country: None (occurrence: None)
  Receive Date: 20040629
  Receipt Date: 20040130
  Transmission Date: 20050107
  Serious: Yes (Hospitalization)
  Sender: FDA-Public Use
  Company Number: US_0402100329

PATIENT
  Age: 71 Year
  Sex: Female
  Weight: 91 kg

DRUGS (7)
  1. HUMALOG [Suspect]
     Indication: DIABETES MELLITUS
     Dates: start: 20040126
  2. HUMULIN 70/30 [Suspect]
     Indication: DIABETES MELLITUS
     Dates: start: 19940101, end: 20040125
  3. LANTOS (INSULIN GLARGINE) [Concomitant]
  4. LASIX [Concomitant]
  5. POTASSIUM [Concomitant]
  6. DIGITALIS [Concomitant]
  7. LIPITOR [Concomitant]

REACTIONS (8)
  - AORTIC OCCLUSION [None]
  - AORTIC VALVE STENOSIS [None]
  - BLOOD GLUCOSE INCREASED [None]
  - CORONARY ARTERY OCCLUSION [None]
  - DRUG INEFFECTIVE [None]
  - MALAISE [None]
  - MASS [None]
  - POST PROCEDURAL PAIN [None]
